FAERS Safety Report 20192161 (Version 1)
Quarter: 2021Q4

REPORT INFORMATION
  Report Type: Spontaneous
  Country: BR (occurrence: BR)
  Receive Date: 20211216
  Receipt Date: 20211216
  Transmission Date: 20220303
  Serious: Yes (Hospitalization, Other)
  Sender: FDA-Public Use
  Company Number: None

PATIENT
  Age: 53 Year
  Sex: Male

DRUGS (11)
  1. TOBRAMYCIN [Suspect]
     Active Substance: TOBRAMYCIN
     Indication: Cystic fibrosis
     Dosage: EVERY 12 HOURS (EVERY OTHER MONTH)
     Route: 048
  2. VITAMIN E [Concomitant]
     Active Substance: .ALPHA.-TOCOPHEROL
  3. PULMOZYME [Concomitant]
     Active Substance: DORNASE ALFA
  4. Alenia [Concomitant]
  5. SIMVASTATIN [Concomitant]
     Active Substance: SIMVASTATIN
  6. BUDESONIDE [Concomitant]
     Active Substance: BUDESONIDE
  7. PANTOPRAZOLE [Concomitant]
     Active Substance: PANTOPRAZOLE
     Dosage: 40MG MORNING AND AFTERNOON
  8. Nutren supplement [Concomitant]
  9. PEG 4000 [Concomitant]
     Dosage: MORNING
  10. DOMPERIDONE [Concomitant]
     Active Substance: DOMPERIDONE
     Dosage: AFTER LUNCH AND DINNER
  11. COLISTIN [Concomitant]
     Active Substance: COLISTIN
     Dosage: EVERY OTHER MONTH (THE MONTH PATIENT DOES NOT USE TOBRAMYCIN PATIENT TAKES COLISTIN)

REACTIONS (3)
  - Hospitalisation [Unknown]
  - Pneumonia bacterial [Recovered/Resolved]
  - Dyspepsia [Not Recovered/Not Resolved]
